FAERS Safety Report 10742598 (Version 1)
Quarter: 2015Q1

REPORT INFORMATION
  Report Type: Spontaneous
  Country: DE (occurrence: DE)
  Receive Date: 20150127
  Receipt Date: 20150127
  Transmission Date: 20150721
  Serious: Yes (Hospitalization)
  Sender: FDA-Public Use
  Company Number: DE-ABBVIE-14P-062-1326410-00

PATIENT
  Sex: Male

DRUGS (2)
  1. DUODOPA [Suspect]
     Active Substance: CARBIDOPA\LEVODOPA
     Indication: PARKINSON^S DISEASE
     Route: 050
     Dates: start: 20130618, end: 20130626
  2. DUODOPA [Suspect]
     Active Substance: CARBIDOPA\LEVODOPA
     Dosage: MD 6ML, CRD 5.5 ML/H, CRN 5.5 ML/H, ED 1.5 ML
     Route: 050
     Dates: start: 20130626, end: 201412

REACTIONS (2)
  - Hallucination [Not Recovered/Not Resolved]
  - Overdose [Not Recovered/Not Resolved]
